FAERS Safety Report 4790529-9 (Version None)
Quarter: 2005Q4

REPORT INFORMATION
  Report Type: 
  Country: None (occurrence: None)
  Receive Date: 20051005
  Receipt Date: 20050919
  Transmission Date: 20060501
  Serious: Yes (Death)
  Sender: FDA-Public Use
  Company Number: 2005S1007448

PATIENT
  Sex: Male
  Weight: 83.4619 kg

DRUGS (13)
  1. CLOZAPINE [Suspect]
     Indication: DEMENTIA
     Dosage: 12.5 MG; QD; PO
     Route: 048
     Dates: start: 20031201, end: 20050801
  2. CLOZAPINE [Suspect]
     Indication: PSYCHOTIC DISORDER
     Dosage: 12.5 MG; QD; PO
     Route: 048
     Dates: start: 20031201, end: 20050801
  3. GLYCERYL TRINITRATE [Concomitant]
  4. LEVOFLOXACIN [Concomitant]
  5. SCOPOLAMINE [Concomitant]
  6. HYDROCHLORIDE [Concomitant]
  7. PETHIDINE HYDROCHLORIDE [Concomitant]
  8. ATENOLOL [Concomitant]
  9. ESCITALOPRAM OXALATE [Concomitant]
  10. VITAMINS [Concomitant]
  11. CARBIDOPA AND LEVODOPA [Concomitant]
  12. RIVASTIGMINE TARTRATE [Concomitant]
  13. PANTOPRAZOLE SODIUM [Concomitant]

REACTIONS (2)
  - CARDIOVASCULAR DISORDER [None]
  - DISEASE PROGRESSION [None]
